FAERS Safety Report 16750764 (Version 1)
Quarter: 2019Q3

REPORT INFORMATION
  Report Type: Spontaneous
  Country: GB (occurrence: GB)
  Receive Date: 20190828
  Receipt Date: 20190828
  Transmission Date: 20191005
  Serious: Yes (Hospitalization, Other)
  Sender: FDA-Public Use
  Company Number: GB-ENDO PHARMACEUTICALS INC-2019-107576

PATIENT
  Age: 34 Year
  Sex: Female
  Weight: 70 kg

DRUGS (3)
  1. FLUOXETINE HYDROCHLORIDE. [Suspect]
     Active Substance: FLUOXETINE HYDROCHLORIDE
     Indication: ANXIETY
     Dosage: 40 MG, DAILY
     Route: 048
     Dates: start: 20180903
  2. DOMPERIDONE [Concomitant]
     Active Substance: DOMPERIDONE
     Indication: PRODUCT USED FOR UNKNOWN INDICATION
     Dosage: UNK UNKNOWN, UNKNOWN
     Route: 065
  3. ALCOHOL. [Suspect]
     Active Substance: ALCOHOL
     Indication: PRODUCT USED FOR UNKNOWN INDICATION
     Dosage: 15 UNITS, UNKNOWN
     Route: 065

REACTIONS (5)
  - Alcohol interaction [Unknown]
  - Restlessness [Recovered/Resolved with Sequelae]
  - Face injury [Unknown]
  - Off label use [Not Recovered/Not Resolved]
  - Somnambulism [Recovered/Resolved with Sequelae]

NARRATIVE: CASE EVENT DATE: 20180903
